FAERS Safety Report 5454256-7 (Version None)
Quarter: 2007Q3

REPORT INFORMATION
  Report Type: 
  Country: None (occurrence: None)
  Receive Date: 20070803
  Receipt Date: 20061004
  Transmission Date: 20080115
  Serious: Yes (Other)
  Sender: FDA-Public Use
  Company Number: 2006SP003815

PATIENT
  Sex: Male

DRUGS (2)
  1. INTERFERON (MANUFACTURER UNKNOWN) [Suspect]
     Indication: HEPATITIS
  2. CLOZAPINE [Concomitant]

REACTIONS (2)
  - GRANULOCYTOPENIA [None]
  - LEUKOPENIA [None]
